FAERS Safety Report 23066245 (Version 1)
Quarter: 2023Q4

REPORT INFORMATION
  Report Type: Spontaneous
  Country: FR (occurrence: FR)
  Receive Date: 20231015
  Receipt Date: 20231015
  Transmission Date: 20240110
  Serious: Yes (Hospitalization, Other)
  Sender: FDA-Public Use
  Company Number: FR-AFSSAPS-NC2023001211

PATIENT
  Age: 57 Year
  Sex: Female
  Weight: 107 kg

DRUGS (5)
  1. CARBOPLATIN [Suspect]
     Active Substance: CARBOPLATIN
     Indication: Triple negative breast cancer
     Dosage: 225 MILLIGRAM, IN TOTAL
     Route: 042
     Dates: start: 20230803, end: 20230803
  2. CARBOPLATIN [Suspect]
     Active Substance: CARBOPLATIN
     Dosage: 225 MILLIGRAM, IN TOTAL
     Route: 042
     Dates: start: 20230810, end: 20230810
  3. PACLITAXEL [Suspect]
     Active Substance: PACLITAXEL
     Indication: Triple negative breast cancer
     Dosage: 160 MILLIGRAM, IN TOTAL
     Route: 042
     Dates: start: 20230803, end: 20230803
  4. PACLITAXEL [Suspect]
     Active Substance: PACLITAXEL
     Dosage: 160 MILLIGRAM, IN TOTAL
     Route: 042
     Dates: start: 20230810, end: 20230810
  5. KEYTRUDA [Suspect]
     Active Substance: PEMBROLIZUMAB
     Indication: Triple negative breast cancer
     Dosage: 200 MILLIGRAM, IN TOTAL
     Route: 042
     Dates: start: 20230803, end: 20230803

REACTIONS (5)
  - Hepatic cyst infection [Recovering/Resolving]
  - Pyrexia [Recovering/Resolving]
  - Staphylococcal bacteraemia [Recovered/Resolved]
  - Sepsis [Recovered/Resolved]
  - Vascular device infection [Recovered/Resolved]

NARRATIVE: CASE EVENT DATE: 20230815
